FAERS Safety Report 9425171 (Version 2)
Quarter: 2013Q3

REPORT INFORMATION
  Report Type: Spontaneous
  Country: FR (occurrence: FR)
  Receive Date: 20130729
  Receipt Date: 20130916
  Transmission Date: 20140515
  Serious: No
  Sender: FDA-Public Use
  Company Number: FR-SANOFI-AVENTIS-2013SA075677

PATIENT
  Age: 68 Year
  Sex: Male

DRUGS (7)
  1. APROVEL [Suspect]
     Indication: HYPERTENSION
     Route: 048
  2. APROVEL [Suspect]
     Indication: CEREBROVASCULAR ACCIDENT
     Route: 048
  3. APROVEL [Suspect]
     Indication: HYPERTENSION
     Route: 048
     Dates: start: 20130610
  4. APROVEL [Suspect]
     Indication: CEREBROVASCULAR ACCIDENT
     Route: 048
     Dates: start: 20130610
  5. TAHOR [Concomitant]
  6. INEXIUM [Concomitant]
  7. STAGID [Concomitant]

REACTIONS (2)
  - Dizziness [Recovering/Resolving]
  - Nausea [Recovering/Resolving]
